FAERS Safety Report 4577861-9 (Version None)
Quarter: 2005Q1

REPORT INFORMATION
  Report Type: 
  Country: None (occurrence: None)
  Receive Date: 20050209
  Receipt Date: 20050201
  Transmission Date: 20050727
  Serious: Yes (Death, Hospitalization)
  Sender: FDA-Public Use
  Company Number: 2005022662

PATIENT
  Age: 83 Year
  Sex: Male

DRUGS (9)
  1. FRAGMIN [Suspect]
     Indication: ILL-DEFINED DISORDER
     Dosage: SUBCUTANEOUS
     Route: 058
     Dates: start: 20041009, end: 20041009
  2. TROMBYL TABLETTER (ACETYLSALICYLIC ACID) [Suspect]
     Indication: ILL-DEFINED DISORDER
     Dosage: 75 MG (75 MG, 1 D), ORAL
     Route: 048
     Dates: start: 20041009, end: 20041009
  3. RETEVASE [Suspect]
     Indication: ACUTE MYOCARDIAL INFARCTION
     Dosage: 20 I.U. (10 I.U., BID)
     Dates: start: 20041009, end: 20041009
  4. METOPROLOL TARTRATE [Concomitant]
  5. CARVEDILOL [Concomitant]
  6. FINASTERIDE [Concomitant]
  7. ENALAPRIL MALEATE [Concomitant]
  8. FUROSEMIDE [Concomitant]
  9. ISOSORBIDE MONONITRATE [Concomitant]

REACTIONS (4)
  - BRAIN SCAN ABNORMAL [None]
  - CEREBRAL HAEMORRHAGE [None]
  - FACIAL PALSY [None]
  - PARESIS [None]
